FAERS Safety Report 10866024 (Version 2)
Quarter: 2015Q2

REPORT INFORMATION
  Report Type: Spontaneous
  Country: NZ (occurrence: NZ)
  Receive Date: 20150225
  Receipt Date: 20150424
  Transmission Date: 20150821
  Serious: Yes (Hospitalization, Other)
  Sender: FDA-Public Use
  Company Number: PHHY2015NZ017687

PATIENT
  Age: 73 Year
  Sex: Male

DRUGS (8)
  1. METFORMIN [Concomitant]
     Active Substance: METFORMIN HYDROCHLORIDE
     Indication: DIABETES MELLITUS
     Dosage: 500 MG, TID
     Route: 048
  2. ATORVASTATIN [Concomitant]
     Active Substance: ATORVASTATIN
     Indication: DYSLIPIDAEMIA
     Dosage: 40 MG, QD
     Route: 048
  3. FUROSEMIDE. [Concomitant]
     Active Substance: FUROSEMIDE
     Indication: CARDIAC FAILURE
     Dosage: 40 MG, QD
     Route: 048
  4. CILAZAPRIL [Concomitant]
     Active Substance: CILAZAPRIL ANHYDROUS
     Indication: HYPERTENSION
     Dosage: 2-5 MG, QD
     Route: 048
  5. GLIPIZIDE. [Concomitant]
     Active Substance: GLIPIZIDE
     Indication: PRODUCT USED FOR UNKNOWN INDICATION
     Dosage: 5 MG, BID
     Route: 048
  6. SPIRONOLACTONE. [Concomitant]
     Active Substance: SPIRONOLACTONE
     Indication: CARDIAC FAILURE
     Dosage: 25 MG, QD
     Route: 048
  7. TASIGNA [Suspect]
     Active Substance: NILOTINIB
     Indication: CHRONIC MYELOID LEUKAEMIA
     Dosage: 400 MG, BID
     Route: 048
     Dates: start: 20141113, end: 20141120
  8. ASPIRIN. [Concomitant]
     Active Substance: ASPIRIN
     Indication: ANGINA UNSTABLE
     Dosage: 100 MG, QD
     Route: 048

REACTIONS (8)
  - Diabetes mellitus [Recovered/Resolved]
  - Blood alkaline phosphatase increased [Recovering/Resolving]
  - Electrocardiogram QT prolonged [Recovering/Resolving]
  - Blood bilirubin increased [Recovering/Resolving]
  - Malaise [Recovered/Resolved]
  - Hyperglycaemia [Recovering/Resolving]
  - Fatigue [Unknown]
  - Liver function test abnormal [Recovering/Resolving]

NARRATIVE: CASE EVENT DATE: 20141120
